FAERS Safety Report 11825192 (Version 1)
Quarter: 2015Q4

REPORT INFORMATION
  Report Type: Spontaneous
  Country: US (occurrence: None)
  Receive Date: 20151210
  Receipt Date: 20151210
  Transmission Date: 20160305
  Serious: Yes (Life-Threatening, Disabling, Other)
  Sender: FDA-Public Use
  Company Number: None

PATIENT
  Age: 85 Year
  Sex: Female
  Weight: 74.84 kg

DRUGS (6)
  1. VIT. D3 [Concomitant]
  2. OXYCODONE W/ACETAMINOPHEN [Concomitant]
  3. ACETAMINOPHEN  W/CAFFEINE [Concomitant]
  4. LEVOFLOXACIN. [Suspect]
     Active Substance: LEVOFLOXACIN
     Indication: BRONCHITIS
     Dosage: BY MOUTH
     Dates: start: 20151118, end: 20151121
  5. COQ10 [Concomitant]
     Active Substance: UBIDECARENONE
  6. VIT. B COMPLEX W/C [Concomitant]

REACTIONS (1)
  - Tendon rupture [None]

NARRATIVE: CASE EVENT DATE: 20151118
